FAERS Safety Report 4830699-7 (Version None)
Quarter: 2005Q4

REPORT INFORMATION
  Report Type: 
  Country: None (occurrence: None)
  Receive Date: 20051114
  Receipt Date: 20051102
  Transmission Date: 20060501
  Serious: Yes (Disabling)
  Sender: FDA-Public Use
  Company Number: TCI2005A04411

PATIENT
  Age: 82 Year
  Sex: Female

DRUGS (8)
  1. ACTOS [Suspect]
     Indication: DIABETES MELLITUS NON-INSULIN-DEPENDENT
     Dosage: 7.5 MG (7.5 MG, 1 IN 1 D), PER ORAL
     Route: 048
     Dates: start: 20051014, end: 20051018
  2. ACTOS [Suspect]
     Indication: DIABETES MELLITUS NON-INSULIN-DEPENDENT
     Dosage: 7.5 MG (7.5 MG, 1 IN 1 D), PER ORAL
     Route: 048
  3. NATEGLINIDE [Concomitant]
  4. GLUFAST (MITIGLINIDE CALCIUM HYDRATE) [Concomitant]
  5. DIBETOS B (BUFORMIN HYDROCHLORIDE) [Concomitant]
  6. LOSARTAN POTASSIUM [Concomitant]
  7. NORVASC [Concomitant]
  8. MEVALOTIN IPRAVASTATIN SODIUM) [Concomitant]

REACTIONS (5)
  - AORTIC VALVE STENOSIS [None]
  - ATRIOVENTRICULAR BLOCK [None]
  - ECHOCARDIOGRAM ABNORMAL [None]
  - ELECTROCARDIOGRAM T WAVE INVERSION [None]
  - HEART RATE DECREASED [None]
